FAERS Safety Report 11432195 (Version 2)
Quarter: 2016Q4

REPORT INFORMATION
  Report Type: Spontaneous
  Country: BR (occurrence: BR)
  Receive Date: 20150828
  Receipt Date: 20161021
  Transmission Date: 20170206
  Serious: Yes (Life-Threatening, Other)
  Sender: FDA-Public Use
  Company Number: BR-JNJFOC-20150815834

PATIENT
  Sex: Male
  Weight: 70 kg

DRUGS (6)
  1. REMICADE [Suspect]
     Active Substance: INFLIXIMAB
     Indication: PSORIATIC ARTHROPATHY
     Route: 042
     Dates: start: 2013, end: 20150615
  2. PURAN [Concomitant]
     Active Substance: LEVOTHYROXINE SODIUM
     Indication: HYPOTHYROIDISM
     Route: 065
  3. SULFASALAZINE. [Concomitant]
     Active Substance: SULFASALAZINE
     Indication: PSORIATIC ARTHROPATHY
     Route: 065
  4. RANITIDINE. [Concomitant]
     Active Substance: RANITIDINE
     Indication: GASTROINTESTINAL DISORDER THERAPY
     Route: 065
  5. REMICADE [Suspect]
     Active Substance: INFLIXIMAB
     Indication: RHEUMATOID ARTHRITIS
     Route: 042
     Dates: start: 2013, end: 20150615
  6. FOLIC ACID. [Concomitant]
     Active Substance: FOLIC ACID
     Indication: PROPHYLAXIS
     Route: 065

REACTIONS (17)
  - Neck pain [Unknown]
  - Bedridden [Recovered/Resolved]
  - Vomiting [Recovered/Resolved]
  - Visual impairment [Unknown]
  - Off label use [Unknown]
  - Diabetes mellitus [Not Recovered/Not Resolved]
  - Headache [Recovered/Resolved]
  - Syncope [Unknown]
  - Blood pressure decreased [Unknown]
  - Chest discomfort [Unknown]
  - Feeling hot [Recovered/Resolved]
  - Hyperhidrosis [Unknown]
  - Dyspnoea [Unknown]
  - Pain [Recovered/Resolved]
  - Infusion related reaction [Recovering/Resolving]
  - Throat tightness [Recovered/Resolved]
  - Feeling cold [Recovered/Resolved]

NARRATIVE: CASE EVENT DATE: 2013
